FAERS Safety Report 8304309-0 (Version None)
Quarter: 2012Q2

REPORT INFORMATION
  Report Type: 
  Country: None (occurrence: None)
  Receive Date: 20120423
  Receipt Date: 20120423
  Transmission Date: 20120825
  Serious: Yes (Other)
  Sender: FDA-Public Use
  Company Number: None

PATIENT
  Age: 61 Year
  Sex: Female
  Weight: 61.234 kg

DRUGS (1)
  1. SAVELLA [Suspect]
     Indication: FIBROMYALGIA
     Dates: start: 20120329, end: 20120404

REACTIONS (4)
  - RASH PAPULAR [None]
  - RASH PRURITIC [None]
  - AKINAESTHESIA [None]
  - RASH GENERALISED [None]
